FAERS Safety Report 6008443-X (Version None)
Quarter: 2008Q4

REPORT INFORMATION
  Report Type: 
  Country: None (occurrence: None)
  Receive Date: 20081217
  Receipt Date: 20081202
  Transmission Date: 20090506
  Serious: Yes (Other)
  Sender: FDA-Public Use
  Company Number: DE-GENENTECH-269774

PATIENT
  Sex: Female
  Weight: 72 kg

DRUGS (3)
  1. XOLAIR [Suspect]
     Indication: ASTHMA
     Dosage: 300 MG, 1/MONTH
     Route: 058
     Dates: start: 20080101
  2. VIANI [Concomitant]
     Indication: ASTHMA
     Dosage: UNK
  3. CORTICOSTEROIDS (UNK INGREDIENTS) [Concomitant]
     Indication: ASTHMA

REACTIONS (1)
  - SERUM SICKNESS [None]
